FAERS Safety Report 4767085-4 (Version None)
Quarter: 2005Q3

REPORT INFORMATION
  Report Type: 
  Country: None (occurrence: None)
  Receive Date: 20050908
  Receipt Date: 20050824
  Transmission Date: 20060218
  Serious: Yes (Death, Hospitalization)
  Sender: FDA-Public Use
  Company Number: 2005-01591

PATIENT
  Age: 70 Year
  Sex: Female
  Weight: 59 kg

DRUGS (28)
  1. VELCADE [Suspect]
     Indication: MULTIPLE MYELOMA
     Dosage: 20.00 MG, 2/WEEK, INTRAVENOUS
     Route: 042
     Dates: start: 20050603, end: 20050627
  2. VELCADE [Suspect]
     Indication: MULTIPLE MYELOMA
     Dosage: 20.00 MG, 2/WEEK, INTRAVENOUS
     Route: 042
     Dates: start: 20050715, end: 20050718
  3. DOXIL [Suspect]
     Indication: MULTIPLE MYELOMA
     Dosage: 76.00 MG, Q 3WEEKS, INTRAVENOUS
     Route: 042
     Dates: start: 20050606, end: 20050627
  4. ENOXAPARIN SODIUM [Concomitant]
  5. OXYGEN (OXYGEN) [Concomitant]
  6. ALBUTEROL [Concomitant]
  7. ANTICOAGULANT CITRATE (ANTICOAGULANT CITRATE DEXTROSE) [Concomitant]
  8. ANALGESICS [Concomitant]
  9. ANTIBIOTICS [Concomitant]
  10. ZOLEDRONIC ACID (ZOLEDRONIC ACID) [Concomitant]
  11. METOCLOPRAMIDE [Concomitant]
  12. TROPISETRON (TROPISETRON) [Concomitant]
  13. ACETAMINOPHEN [Concomitant]
  14. GENTAMICIN [Concomitant]
  15. SULFAMETHOXAZOLE/TRIMETHOPRIM   DAK  SULFAMETHOXAZOLE, TRIMETHOPRIM) [Concomitant]
  16. OXYCODONE HCL [Concomitant]
  17. ALUMINIUM W/MAGNESIUM HYDROXIDE/SIMETICONE/ (MAGNESIUM HYDROXIDE, SIME [Concomitant]
  18. CALCIUM CHLORIDE (CALCIUM CHLORIDE DIHYDRATE) [Concomitant]
  19. PHOSPHATE-SANDOZ (SODIUM BICARBONATE, SODIUM PHOSPHATE MONOBASIC (ANHY [Concomitant]
  20. POTASSIUM CHLORIDE [Concomitant]
  21. RABEPRAZOLE SODIUM [Concomitant]
  22. CEPHALEXIN [Concomitant]
  23. CEFTRIAXONE [Concomitant]
  24. AMOXICILLIN [Concomitant]
  25. SODIUM CITRATE [Concomitant]
  26. CODEINE SUL TAB [Concomitant]
  27. TEMAZEPAM [Concomitant]
  28. WARFARIN SODIUM [Concomitant]

REACTIONS (33)
  - ATELECTASIS [None]
  - BLOOD ALKALINE PHOSPHATASE INCREASED [None]
  - BLOOD BICARBONATE DECREASED [None]
  - BLOOD CREATININE INCREASED [None]
  - BLOOD LACTATE DEHYDROGENASE INCREASED [None]
  - BLOOD POTASSIUM INCREASED [None]
  - BLOOD SODIUM DECREASED [None]
  - BLOOD UREA INCREASED [None]
  - BLOOD URIC ACID INCREASED [None]
  - C-REACTIVE PROTEIN INCREASED [None]
  - CHEST PAIN [None]
  - CHEST X-RAY ABNORMAL [None]
  - COMPUTERISED TOMOGRAM ABDOMEN ABNORMAL [None]
  - CONFUSIONAL STATE [None]
  - DIARRHOEA [None]
  - DILATATION ATRIAL [None]
  - DILATATION VENTRICULAR [None]
  - DYSPNOEA [None]
  - ELECTROCARDIOGRAM T WAVE INVERSION [None]
  - GAMMA-GLUTAMYLTRANSFERASE INCREASED [None]
  - MYOCARDIAL ISCHAEMIA [None]
  - PALLOR [None]
  - PLEURAL EFFUSION [None]
  - PLEURAL FIBROSIS [None]
  - PROTEIN TOTAL INCREASED [None]
  - PULMONARY HYPERTENSION [None]
  - PYREXIA [None]
  - RHABDOMYOLYSIS [None]
  - RIB FRACTURE [None]
  - TRICUSPID VALVE INCOMPETENCE [None]
  - URINARY TRACT INFECTION [None]
  - VENTRICULAR DYSFUNCTION [None]
  - VENTRICULAR HYPOKINESIA [None]
